FAERS Safety Report 18341343 (Version 1)
Quarter: 2020Q4

REPORT INFORMATION
  Report Type: Spontaneous
  Country: FR (occurrence: FR)
  Receive Date: 20201003
  Receipt Date: 20201003
  Transmission Date: 20210113
  Serious: Yes (Other)
  Sender: FDA-Public Use
  Company Number: NVSC2020FR264211

PATIENT
  Age: 41 Year
  Sex: Female

DRUGS (3)
  1. DEXAMETHASONE. [Suspect]
     Active Substance: DEXAMETHASONE
     Indication: SURGERY
     Dosage: UNK
     Route: 042
     Dates: start: 2019
  2. ACUPAN [Suspect]
     Active Substance: NEFOPAM HYDROCHLORIDE
     Indication: SURGERY
     Dosage: UNK
     Route: 042
     Dates: start: 2019
  3. PROFENID [Suspect]
     Active Substance: KETOPROFEN
     Indication: SURGERY
     Dosage: UNK
     Route: 042
     Dates: start: 2019

REACTIONS (1)
  - Face oedema [Recovered/Resolved]

NARRATIVE: CASE EVENT DATE: 2019
